FAERS Safety Report 8198277 (Version 2)
Quarter: 2013Q2

REPORT INFORMATION
  Report Type: Spontaneous
  Country: MX (occurrence: MX)
  Receive Date: 20111025
  Receipt Date: 20130408
  Transmission Date: 20140414
  Serious: Yes (Death, Other)
  Sender: FDA-Public Use
  Company Number: PHHY2011MX93127

PATIENT
  Age: 66 Year
  Sex: Male

DRUGS (1)
  1. TRILEPTAL [Suspect]
     Indication: EPILEPSY
     Dosage: 300 MG, DAILY
     Route: 048
     Dates: end: 2010

REACTIONS (3)
  - Pancreatic carcinoma [Fatal]
  - Infarction [Unknown]
  - Renal disorder [Unknown]
